FAERS Safety Report 24237690 (Version 1)
Quarter: 2024Q3

REPORT INFORMATION
  Report Type: Spontaneous
  Country: IN (occurrence: IN)
  Receive Date: 20240822
  Receipt Date: 20240822
  Transmission Date: 20241016
  Serious: Yes (Other)
  Sender: PFIZER
  Company Number: IN-PFIZER INC-2021622597

PATIENT
  Age: 69 Year
  Sex: Female

DRUGS (10)
  1. PALBOCICLIB [Suspect]
     Active Substance: PALBOCICLIB
     Indication: Breast cancer metastatic
     Dosage: 125 MG, CYCLIC, ONCE DAILY FOR 21 DAYS ON 7 DAYS OFF
     Route: 048
     Dates: start: 20210424
  2. PALBOCICLIB [Suspect]
     Active Substance: PALBOCICLIB
     Dosage: 100 MG, CYCLIC, ONCE A DAY X 21 DAYS ONE WEEK GAP
     Route: 048
     Dates: start: 20230306
  3. FEMARA [Concomitant]
     Active Substance: LETROZOLE
     Dosage: 2.5 MG, 1X/DAY (FOR 3 MONTHS)
     Dates: start: 202104
  4. ZOMETA [Concomitant]
     Active Substance: ZOLEDRONIC ACID
     Dosage: 4 MG ONCE IN A MONTH
     Dates: start: 20210317
  5. ZOMETA [Concomitant]
     Active Substance: ZOLEDRONIC ACID
     Dosage: 4 MG (OVER 15MIN-TO PROCEED)
     Dates: start: 202104
  6. ZOMETA [Concomitant]
     Active Substance: ZOLEDRONIC ACID
     Dosage: 4 MG ONWARDS ONCE IN 3 MONTHS
     Dates: start: 20220808
  7. CALCIUM\CHOLECALCIFEROL [Concomitant]
     Active Substance: CALCIUM\CHOLECALCIFEROL
     Dosage: 500 MG, 2X/DAY (FOR 3 MONTHS)
     Dates: start: 202104
  8. LIVOGEN [FERROUS FUMARATE;FOLIC ACID] [Concomitant]
     Dosage: UNK, 1X/DAY (FOR 3 MONTHS)
     Dates: start: 202104
  9. ACETAMINOPHEN [Concomitant]
     Active Substance: ACETAMINOPHEN
     Dosage: UNK, (1 STAT)
  10. NEUROBION FORTE [CALCIUM PANTOTHENATE;CYANOCOBALAMIN;NICOTINAMIDE;PYRI [Concomitant]
     Dosage: UNK, 1X/DAY (FOR 3 MONTHS)

REACTIONS (13)
  - White blood cell count decreased [Recovering/Resolving]
  - Endodontic procedure [Unknown]
  - Fatigue [Unknown]
  - Neutrophil count decreased [Unknown]
  - Weight increased [Unknown]
  - Heart rate increased [Unknown]
  - Blood pressure systolic increased [Unknown]
  - Respiratory rate increased [Unknown]
  - Haemoglobin decreased [Unknown]
  - Pulmonary mass [Unknown]
  - Skin exfoliation [Recovered/Resolved with Sequelae]
  - Paraesthesia [Recovered/Resolved with Sequelae]
  - Pain [Unknown]

NARRATIVE: CASE EVENT DATE: 20210915
